FAERS Safety Report 20197732 (Version 1)
Quarter: 2021Q4

REPORT INFORMATION
  Report Type: Spontaneous
  Country: TR (occurrence: TR)
  Receive Date: 20211217
  Receipt Date: 20211217
  Transmission Date: 20220303
  Serious: No
  Sender: FDA-Public Use
  Company Number: TR-MLMSERVICE-20211112-3213466-1

PATIENT
  Age: 64 Year
  Sex: Female

DRUGS (9)
  1. ALBUTEROL SULFATE [Suspect]
     Active Substance: ALBUTEROL SULFATE
     Indication: COVID-19 pneumonia
     Dosage: UNK
     Route: 055
     Dates: start: 202008
  2. HYDROXYCHLOROQUINE SULFATE [Suspect]
     Active Substance: HYDROXYCHLOROQUINE SULFATE
     Indication: COVID-19 pneumonia
     Dosage: UNK
     Route: 065
     Dates: start: 202008
  3. METHYLPREDNISOLONE [Suspect]
     Active Substance: METHYLPREDNISOLONE
     Indication: COVID-19 pneumonia
     Dosage: UNK
     Route: 055
     Dates: start: 202008
  4. OLANZAPINE [Suspect]
     Active Substance: OLANZAPINE
     Indication: Mania
     Dosage: 2 DOSAGE FORM
     Route: 065
     Dates: start: 2020
  5. ZUCLOPENTHIXOL DECANOATE [Suspect]
     Active Substance: ZUCLOPENTHIXOL DECANOATE
     Indication: Mania
     Dosage: 20 MILLIGRAM (TWICE WEEKLY)
     Route: 065
     Dates: start: 2020
  6. ZUCLOPENTHIXOL ACETATE [Suspect]
     Active Substance: ZUCLOPENTHIXOL ACETATE
     Indication: Mania
     Dosage: UNK
     Route: 030
     Dates: start: 2020
  7. HALOPERIDOL [Suspect]
     Active Substance: HALOPERIDOL
     Indication: Mania
     Dosage: 10 MILLIGRAM (THE PATIENT WAS TREATED AS OUTPATIENT AND 10 MG HALOPERIDOL WAS PERFORMED BY INTRAMUSC
     Route: 030
     Dates: start: 2020
  8. ENOXAPARIN SODIUM [Suspect]
     Active Substance: ENOXAPARIN SODIUM
     Indication: COVID-19 pneumonia
     Dosage: UNK
     Route: 058
     Dates: start: 202008
  9. BIPERIDEN [Concomitant]
     Active Substance: BIPERIDEN
     Indication: Mania
     Dosage: UNK
     Route: 030
     Dates: start: 202008

REACTIONS (6)
  - Bradykinesia [Unknown]
  - Gait disturbance [Unknown]
  - Joint stiffness [Unknown]
  - Cyclothymic disorder [Unknown]
  - Extrapyramidal disorder [Unknown]
  - Off label use [Unknown]

NARRATIVE: CASE EVENT DATE: 20200101
